FAERS Safety Report 7714869-6 (Version None)
Quarter: 2011Q3

REPORT INFORMATION
  Report Type: 
  Country: None (occurrence: None)
  Receive Date: 20110810
  Receipt Date: 20110610
  Transmission Date: 20111222
  Serious: No
  Sender: FDA-Public Use
  Company Number: 1000021563

PATIENT
  Age: 49 Year
  Sex: Female

DRUGS (5)
  1. NAPROXEN [Concomitant]
  2. SAVELLA [Suspect]
     Dosage: 12.5 MG (12.5 MG, 1 IN 1 D), ORAL 12.5 MG BID (12.5 MG, 2 IN 1 D), ORAL 25 MG BID (25 MG, 2 IN 1 D),
     Route: 048
     Dates: start: 20110501, end: 20110101
  3. SAVELLA [Suspect]
     Dosage: 12.5 MG (12.5 MG, 1 IN 1 D), ORAL 12.5 MG BID (12.5 MG, 2 IN 1 D), ORAL 25 MG BID (25 MG, 2 IN 1 D),
     Route: 048
     Dates: start: 20110101, end: 20110101
  4. SAVELLA [Suspect]
     Dosage: 12.5 MG (12.5 MG, 1 IN 1 D), ORAL 12.5 MG BID (12.5 MG, 2 IN 1 D), ORAL 25 MG BID (25 MG, 2 IN 1 D),
     Route: 048
     Dates: start: 20110101
  5. THYROID MEDICATION (NOS) (THYROID MEDICATION (NOS)) [Concomitant]

REACTIONS (4)
  - NAUSEA [None]
  - HOT FLUSH [None]
  - HEADACHE [None]
  - HYPERHIDROSIS [None]
